FAERS Safety Report 23338517 (Version 1)
Quarter: 2023Q4

REPORT INFORMATION
  Report Type: Spontaneous
  Country: IT (occurrence: IT)
  Receive Date: 20231226
  Receipt Date: 20231226
  Transmission Date: 20240109
  Serious: Yes (Other)
  Sender: FDA-Public Use
  Company Number: None

PATIENT
  Age: 60 Year
  Sex: Male
  Weight: 55 kg

DRUGS (2)
  1. CISPLATIN [Suspect]
     Active Substance: CISPLATIN
     Indication: Lung cancer metastatic
     Dosage: 110 MILLIGRAM
     Route: 042
     Dates: start: 20230811, end: 20231103
  2. GEMCITABINE [Suspect]
     Active Substance: GEMCITABINE
     Indication: Lung cancer metastatic
     Dosage: 1500 MILLIGRAM
     Route: 042
     Dates: start: 20230811, end: 20231110

REACTIONS (3)
  - Leukopenia [Recovering/Resolving]
  - Neutropenia [Recovering/Resolving]
  - Haemoglobin decreased [Recovering/Resolving]

NARRATIVE: CASE EVENT DATE: 20230904
